FAERS Safety Report 4827142-0 (Version None)
Quarter: 2005Q4

REPORT INFORMATION
  Report Type: 
  Country: None (occurrence: None)
  Receive Date: 20051014
  Receipt Date: 20050803
  Transmission Date: 20060501
  Serious: No
  Sender: FDA-Public Use
  Company Number: 2005SP002222

PATIENT
  Age: 42 Year
  Sex: Female
  Weight: 72.1219 kg

DRUGS (3)
  1. LUNESTA [Suspect]
     Indication: INSOMNIA
     Dosage: 3 MG;HS;ORAL
     Route: 048
     Dates: start: 20050720
  2. TOPROL-XL [Concomitant]
  3. ESTROGENS [Concomitant]

REACTIONS (1)
  - ARTHRALGIA [None]
